FAERS Safety Report 9805416 (Version 1)
Quarter: 2014Q1

REPORT INFORMATION
  Report Type: Spontaneous
  Country: AU (occurrence: AU)
  Receive Date: 20140109
  Receipt Date: 20140109
  Transmission Date: 20141002
  Serious: Yes (Other)
  Sender: FDA-Public Use
  Company Number: AU-BAYER-2014-000026

PATIENT
  Age: 30 Year
  Sex: Female

DRUGS (3)
  1. ACETYLSALICYLIC ACID({=100 MG) [Suspect]
  2. ENOXAPARIN [Concomitant]
     Indication: PROPHYLAXIS
  3. ERYTHROPOIETIN [Concomitant]

REACTIONS (3)
  - Exposure during pregnancy [None]
  - Off label use [None]
  - Pre-eclampsia [None]
